FAERS Safety Report 7298824-9 (Version None)
Quarter: 2011Q1

REPORT INFORMATION
  Report Type: 
  Country: None (occurrence: None)
  Receive Date: 20110217
  Receipt Date: 20110208
  Transmission Date: 20110831
  Serious: Yes (Other)
  Sender: FDA-Public Use
  Company Number: CA-JNJFOC-20110202905

PATIENT
  Age: 54 Year
  Sex: Male

DRUGS (6)
  1. VORICONAZOLE [Interacting]
     Indication: ASPERGILLOSIS
     Route: 042
  2. ETRAVIRINE [Suspect]
     Indication: HIV INFECTION
     Route: 048
  3. EMTRICITABINE/TENOFOVIR DISOPROXIL FUMARATE [Concomitant]
     Indication: HIV INFECTION
     Route: 048
  4. DARUNAVIR [Suspect]
     Indication: HIV INFECTION
     Route: 048
  5. RITONAVIR [Suspect]
     Indication: HIV INFECTION
     Route: 048
  6. CASPOFUNGIN [Concomitant]
     Indication: ASPERGILLOSIS
     Route: 042

REACTIONS (1)
  - DRUG INTERACTION [None]
